FAERS Safety Report 8628990 (Version 4)
Quarter: 2012Q4

REPORT INFORMATION
  Report Type: 
  Country: FI (occurrence: FI)
  Receive Date: 20120621
  Receipt Date: 20120905
  Transmission Date: 20130627
  Serious: Yes (Other)
  Sender: FDA-Public Use
  Company Number: FI-PFIZER INC-2012146783

PATIENT
  Age: 50 Year
  Sex: Female

DRUGS (4)
  1. LYRICA [Suspect]
     Indication: NEURALGIA
     Dosage: UNK
  2. CERAZETTE [Interacting]
     Indication: MENSTRUAL DISORDER
  3. LOSATRIX COMP [Concomitant]
     Indication: HYPERTENSION
  4. LANSOPRAZOL ACTAVIS [Concomitant]
     Dosage: UNK, 2x/day

REACTIONS (2)
  - Impaired driving ability [Recovered/Resolved]
  - Vomiting [Recovered/Resolved]
